FAERS Safety Report 14925320 (Version 3)
Quarter: 2018Q3

REPORT INFORMATION
  Report Type: Spontaneous
  Country: TR (occurrence: TR)
  Receive Date: 20180522
  Receipt Date: 20180705
  Transmission Date: 20181010
  Serious: No
  Sender: FDA-Public Use
  Company Number: TR-009507513-1805TUR006662

PATIENT
  Age: 26 Month
  Sex: Female

DRUGS (2)
  1. CANCIDAS [Suspect]
     Active Substance: CASPOFUNGIN ACETATE
     Indication: ORAL CANDIDIASIS
     Dosage: UNK
     Route: 051
  2. FLUCONAZOLE. [Concomitant]
     Active Substance: FLUCONAZOLE
     Indication: CANDIDA INFECTION

REACTIONS (1)
  - Product use issue [Unknown]
